FAERS Safety Report 9712511 (Version 2)
Quarter: 2014Q2

REPORT INFORMATION
  Report Type: Spontaneous
  Country: US (occurrence: US)
  Receive Date: 20131126
  Receipt Date: 20140510
  Transmission Date: 20141212
  Serious: Yes (Life-Threatening, Hospitalization)
  Sender: FDA-Public Use
  Company Number: US-BRISTOL-MYERS SQUIBB COMPANY-19193887

PATIENT
  Age: 72 Year
  Sex: Female

DRUGS (4)
  1. BYDUREON [Suspect]
     Indication: TYPE 2 DIABETES MELLITUS
     Dosage: LAST DOSE-07AUG13
     Dates: start: 20130807
  2. ACTOS [Suspect]
     Route: 048
     Dates: start: 20130801
  3. LOSARTAN [Suspect]
     Route: 048
     Dates: start: 201110
  4. ASPIRIN [Concomitant]

REACTIONS (2)
  - Angioedema [Recovered/Resolved]
  - Urinary tract infection [Not Recovered/Not Resolved]
